FAERS Safety Report 6855539-6 (Version None)
Quarter: 2010Q3

REPORT INFORMATION
  Report Type: 
  Country: None (occurrence: None)
  Receive Date: 20100719
  Receipt Date: 20100714
  Transmission Date: 20110219
  Serious: Yes (Death, Hospitalization, Other)
  Sender: FDA-Public Use
  Company Number: IT-BAYER-201026653GPV

PATIENT
  Age: 69 Year
  Sex: Male
  Weight: 94 kg

DRUGS (47)
  1. SORAFENIB [Suspect]
     Indication: HEPATIC NEOPLASM MALIGNANT
     Dosage: TOTAL DAILY DOSE: 800 MG
     Route: 048
     Dates: start: 20100414, end: 20100504
  2. ERLOTINIB/PLACEBO [Suspect]
     Indication: HEPATIC NEOPLASM MALIGNANT
     Dosage: TOTAL DAILY DOSE: 150 MG
     Route: 048
     Dates: start: 20100414, end: 20100504
  3. PROPRANOLOL [Concomitant]
     Indication: HYPERTENSION
     Route: 048
     Dates: end: 20100529
  4. OMEPRAZOLE [Concomitant]
     Indication: PROPHYLAXIS
     Route: 048
     Dates: end: 20100331
  5. OMEPRAZOLE [Concomitant]
     Dates: end: 20100516
  6. LISINOPRIL [Concomitant]
     Indication: HYPERTENSION
     Dates: end: 20100516
  7. RANITIDINE HCL [Concomitant]
     Indication: PROPHYLAXIS
     Route: 048
     Dates: start: 20100401, end: 20100516
  8. RANITIDINE HCL [Concomitant]
     Route: 048
     Dates: start: 20100517, end: 20100523
  9. PLASIL [Concomitant]
     Indication: VOMITING
     Dates: start: 20100414, end: 20100516
  10. ALBUMINA HUMANA [Concomitant]
     Indication: ASCITES
     Dates: start: 20100526, end: 20100527
  11. ALBUMINA HUMANA [Concomitant]
     Dates: start: 20100519, end: 20100520
  12. ALBUMINA HUMANA [Concomitant]
     Dosage: PER WEEK
     Dates: start: 20100510, end: 20100516
  13. ALBUMINA HUMANA [Concomitant]
     Dates: start: 20100521, end: 20100521
  14. ALBUMINA HUMANA [Concomitant]
     Dates: start: 20100522, end: 20100522
  15. PREFOLIC [Concomitant]
     Indication: ANAEMIA PROPHYLAXIS
     Dates: start: 20100510, end: 20100518
  16. ZARIVIZ [Concomitant]
     Indication: ASCITES
     Dosage: 1 VIAL EV
     Dates: start: 20100517, end: 20100517
  17. ZARIVIZ [Concomitant]
     Dosage: 3 VIALS
     Dates: start: 20100518, end: 20100526
  18. ZARIVIZ [Concomitant]
     Dosage: 1 VIAL
     Dates: start: 20100527, end: 20100527
  19. LAEVOLAC [Concomitant]
     Indication: ASCITES
     Dosage: 1 SPOON
     Dates: start: 20100517, end: 20100519
  20. LAEVOLAC [Concomitant]
     Dosage: 2 SPOONS
     Dates: start: 20100520, end: 20100528
  21. GLIPRESSINA [Concomitant]
     Indication: ASCITES
     Dosage: EV
     Dates: start: 20100519, end: 20100519
  22. GLIPRESSINA [Concomitant]
     Dosage: EV
     Dates: start: 20100520, end: 20100523
  23. NORMIX [Concomitant]
     Indication: ASCITES
     Dates: start: 20100519, end: 20100519
  24. NORMIX [Concomitant]
     Dates: start: 20100529, end: 20100529
  25. NORMIX [Concomitant]
     Dates: start: 20100520, end: 20100528
  26. KAYEXALATE [Concomitant]
     Indication: ASCITES
     Dosage: 1 SPOON
     Dates: start: 20100520, end: 20100522
  27. IDROPLURIVIT [Concomitant]
     Indication: ASCITES
     Dates: start: 20100526, end: 20100526
  28. IDROPLURIVIT [Concomitant]
     Dates: start: 20100527, end: 20100528
  29. IDROPLURIVIT [Concomitant]
     Dates: start: 20100522, end: 20100525
  30. IDROPLURIVIT [Concomitant]
     Dates: start: 20100521, end: 20100521
  31. GLUCOSAE 5% [Concomitant]
     Indication: ASCITES
     Dosage: EV
     Dates: start: 20100521, end: 20100522
  32. GLUCOSAE 5% [Concomitant]
     Dosage: EV
     Dates: start: 20100527, end: 20100530
  33. BICARBONAT [Concomitant]
     Indication: ASCITES
     Dates: start: 20100521, end: 20100521
  34. ANTRA [Concomitant]
     Indication: GASTRIC DISORDER
     Route: 048
     Dates: start: 20100524, end: 20100524
  35. ANTRA [Concomitant]
     Route: 048
     Dates: start: 20100525, end: 20100528
  36. ANTRA [Concomitant]
     Route: 048
     Dates: start: 20100529, end: 20100529
  37. ANTRA [Concomitant]
     Route: 058
     Dates: start: 20100529, end: 20100530
  38. SUCRALFIN [Concomitant]
     Indication: GASTRIC DISORDER
     Dosage: 2 SACHET
     Dates: start: 20100524, end: 20100524
  39. SUCRALFIN [Concomitant]
     Dosage: 3 SACHET
     Dates: start: 20100525, end: 20100528
  40. SUCRALFIN [Concomitant]
     Dosage: 2 SACHET
     Dates: start: 20100529, end: 20100529
  41. TAZOCIN [Concomitant]
     Indication: ASCITES
     Dosage: EV
     Dates: start: 20100530, end: 20100530
  42. TAZOCIN [Concomitant]
     Dosage: EV
     Dates: start: 20100527, end: 20100528
  43. TAZOCIN [Concomitant]
     Dosage: EV
     Dates: start: 20100529, end: 20100529
  44. RED BLOOD CELLS [Concomitant]
     Indication: ANAEMIA
     Dates: start: 20100527, end: 20100527
  45. RED BLOOD CELLS [Concomitant]
     Dates: start: 20100529, end: 20100529
  46. SYNCHRO LEVELS [Concomitant]
     Indication: SUPPLEMENTATION THERAPY
     Dates: end: 20100331
  47. RANIDIL [Concomitant]
     Indication: PROPHYLAXIS
     Route: 048
     Dates: start: 20100517, end: 20100523

REACTIONS (5)
  - ASCITES [None]
  - DIARRHOEA [None]
  - FATIGUE [None]
  - GASTROINTESTINAL HAEMORRHAGE [None]
  - WEIGHT DECREASED [None]
